FAERS Safety Report 19468965 (Version 2)
Quarter: 2021Q3

REPORT INFORMATION
  Report Type: Report from Study
  Country: DE (occurrence: DE)
  Receive Date: 20210628
  Receipt Date: 20210723
  Transmission Date: 20211014
  Serious: Yes (Hospitalization)
  Sender: FDA-Public Use
  Company Number: DE-TAKEDA-2021TUS039776

PATIENT
  Sex: Female

DRUGS (1)
  1. VEDOLIZUMAB [Suspect]
     Active Substance: VEDOLIZUMAB
     Indication: INFLAMMATORY BOWEL DISEASE
     Dosage: UNK
     Route: 042
     Dates: start: 20161121, end: 20171219

REACTIONS (1)
  - Subileus [Recovered/Resolved with Sequelae]

NARRATIVE: CASE EVENT DATE: 20200307
